FAERS Safety Report 5795570-5 (Version None)
Quarter: 2008Q2

REPORT INFORMATION
  Report Type: 
  Country: None (occurrence: None)
  Receive Date: 20080630
  Receipt Date: 20080623
  Transmission Date: 20081010
  Serious: Yes (Life-Threatening, Other)
  Sender: FDA-Public Use
  Company Number: ZA-PFIZER INC-2008048166

PATIENT
  Age: 53 Year
  Sex: Female

DRUGS (4)
  1. EPANUTIN SUSPENSION [Suspect]
     Indication: EPILEPSY
     Route: 042
  2. EPANUTIN SUSPENSION [Suspect]
     Indication: STATUS EPILEPTICUS
  3. CARDIOVASCULAR SYSTEM DRUGS [Concomitant]
  4. EPANUTIN [Concomitant]
     Route: 048

REACTIONS (2)
  - CARDIAC ARREST [None]
  - INCORRECT DRUG ADMINISTRATION RATE [None]
